FAERS Safety Report 14466111 (Version 5)
Quarter: 2018Q2

REPORT INFORMATION
  Report Type: Report from Study
  Country: None (occurrence: TR)
  Receive Date: 20180131
  Receipt Date: 20180417
  Transmission Date: 20180711
  Serious: Yes (Hospitalization, Other)
  Sender: FDA-Public Use
  Company Number: TR-ABBVIE-17K-161-2184978-00

PATIENT
  Age: 74 Year
  Sex: Female
  Weight: 54 kg

DRUGS (16)
  1. DUODOPA [Suspect]
     Active Substance: CARBIDOPA\LEVODOPA
     Indication: PARKINSON^S DISEASE
     Dosage: MORNING: 5.0 ML CONTINUOUS: 1.7 ML-2.0 ML EXTRA: 1.0 ML
     Route: 050
     Dates: start: 20171122, end: 20171206
  2. DUODOPA [Suspect]
     Active Substance: CARBIDOPA\LEVODOPA
     Dosage: MORNING : 5.0 ML CONTINUOUS: 2.0 ML EXTRA: 1.0 ML
     Route: 050
     Dates: start: 20180409
  3. CONCOR [Concomitant]
     Active Substance: BISOPROLOL FUMARATE
     Indication: PALPITATIONS
     Route: 048
     Dates: start: 2010
  4. BUSCOPAN [Concomitant]
     Active Substance: BUTYLSCOPOLAMINE BROMIDE
     Indication: ABDOMINAL PAIN
     Route: 048
     Dates: start: 20171202
  5. MADOPAR [Suspect]
     Active Substance: BENSERAZIDE HYDROCHLORIDE\LEVODOPA
     Indication: PARKINSON^S DISEASE
     Route: 048
     Dates: start: 20171206
  6. HYZAAR [Concomitant]
     Active Substance: HYDROCHLOROTHIAZIDE\LOSARTAN POTASSIUM
     Indication: BLOOD PRESSURE ABNORMAL
     Dosage: 25 MG LOSARTAN + 100 MG HYDROCHLOROTHIAZIDE
     Route: 048
     Dates: start: 2010
  7. LANSOR [Concomitant]
     Active Substance: LANSOPRAZOLE
     Indication: PRODUCT USED FOR UNKNOWN INDICATION
     Route: 048
  8. BENEXOL [Concomitant]
     Active Substance: CYANOCOBALAMIN\PYRIDOXINE\THIAMINE
     Indication: VITAMIN SUPPLEMENTATION
     Route: 048
     Dates: start: 20171123, end: 20171204
  9. RESOURCE 2.0 [Concomitant]
     Indication: NUTRITIONAL SUPPLEMENTATION
     Route: 048
     Dates: start: 201710
  10. DUODOPA [Suspect]
     Active Substance: CARBIDOPA\LEVODOPA
     Dosage: MORNING : 5.0 ML CONTINUOUS: 2.0 ML EXTRA: 1.0 ML
     Route: 050
     Dates: start: 20171208, end: 20180408
  11. RIVASTIGMIN [Concomitant]
     Active Substance: RIVASTIGMINE
     Indication: AMNESIA
     Dosage: 5 CM 9 MG
     Route: 062
     Dates: start: 2015
  12. ACEMETACIN [Concomitant]
     Active Substance: ACEMETACIN
     Indication: BACK PAIN
     Route: 048
     Dates: start: 201701
  13. PRAMIPEXOL [Concomitant]
     Active Substance: PRAMIPEXOLE
     Indication: PARKINSON^S DISEASE
     Route: 048
  14. IRDAPIN [Concomitant]
     Indication: PRODUCT USED FOR UNKNOWN INDICATION
     Dosage: DAILY DOSE-300 MILLIGRAM
  15. MOTILIUM [Concomitant]
     Active Substance: DOMPERIDONE
     Indication: ANTIEMETIC SUPPORTIVE CARE
     Route: 048
     Dates: start: 20171202
  16. CORASPIN [Concomitant]
     Active Substance: ASPIRIN
     Indication: VARICOSE VEIN
     Route: 048
     Dates: start: 2016

REACTIONS (14)
  - Nausea [Recovered/Resolved]
  - Dyskinesia [Recovered/Resolved]
  - Cardiac hypertrophy [Not Recovered/Not Resolved]
  - Vomiting [Recovered/Resolved]
  - Blood pressure increased [Recovered/Resolved]
  - Vomiting [Recovered/Resolved]
  - Dyskinesia [Recovered/Resolved]
  - Device occlusion [Unknown]
  - Nausea [Recovered/Resolved]
  - Bradykinesia [Recovered/Resolved]
  - Vomiting [Recovered/Resolved]
  - Diarrhoea [Recovered/Resolved]
  - Tremor [Recovering/Resolving]
  - Nausea [Recovered/Resolved]

NARRATIVE: CASE EVENT DATE: 201712
